FAERS Safety Report 4745161-X (Version None)
Quarter: 2005Q3

REPORT INFORMATION
  Report Type: 
  Country: None (occurrence: None)
  Receive Date: 20050812
  Receipt Date: 20050728
  Transmission Date: 20060218
  Serious: Yes (Hospitalization)
  Sender: FDA-Public Use
  Company Number: S05-AUS-02778-01

PATIENT
  Age: 54 Year
  Sex: Male

DRUGS (2)
  1. LEXAPRO [Suspect]
     Dosage: 10 MG QD PO
     Route: 048
  2. LEXAPRO [Suspect]
     Dosage: 15 MG QD PO
     Route: 048
     Dates: end: 20050701

REACTIONS (2)
  - CONVULSION [None]
  - HYPONATRAEMIA [None]
